FAERS Safety Report 4520688-4 (Version None)
Quarter: 2004Q4

REPORT INFORMATION
  Report Type: 
  Country: None (occurrence: None)
  Receive Date: 20041207
  Receipt Date: 20040909
  Transmission Date: 20050328
  Serious: Yes (Disabling)
  Sender: FDA-Public Use
  Company Number: US-MERCK-0409USA00689

PATIENT
  Age: 48 Year
  Sex: Female
  Weight: 69 kg

DRUGS (8)
  1. ZOCOR [Suspect]
     Indication: BLOOD CHOLESTEROL INCREASED
     Route: 048
     Dates: start: 19980101
  2. ZOCOR [Suspect]
     Route: 048
  3. SYNTHROID [Concomitant]
     Route: 065
  4. TENORMIN [Concomitant]
     Route: 065
  5. LOTREL [Concomitant]
     Route: 065
  6. INSULIN [Concomitant]
     Route: 065
  7. LANTUS [Concomitant]
     Route: 065
  8. HUMALOG [Concomitant]
     Route: 065

REACTIONS (5)
  - DIFFICULTY IN WALKING [None]
  - INTERMITTENT CLAUDICATION [None]
  - MUSCLE CRAMP [None]
  - MUSCLE TIGHTNESS [None]
  - MYALGIA [None]
